FAERS Safety Report 8314531-5 (Version None)
Quarter: 2012Q2

REPORT INFORMATION
  Report Type: 
  Country: None (occurrence: None)
  Receive Date: 20120426
  Receipt Date: 20120418
  Transmission Date: 20120825
  Serious: Yes (Other)
  Sender: FDA-Public Use
  Company Number: US-ABBOTT-12P-163-0927383-00

PATIENT
  Sex: Female
  Weight: 55.388 kg

DRUGS (5)
  1. PRAVASTATIN [Concomitant]
     Indication: HYPERLIPIDAEMIA
  2. CLONAZEPAM [Concomitant]
     Indication: ANXIETY
  3. PROMETRIUM [Suspect]
     Indication: MENOPAUSAL SYMPTOMS
     Dates: start: 20020101, end: 20120301
  4. ESTRATEST H.S. [Suspect]
     Indication: MENOPAUSAL SYMPTOMS
     Dates: start: 20020101, end: 20120301
  5. LEXAPRO [Concomitant]
     Indication: ANXIETY

REACTIONS (8)
  - VULVOVAGINAL DRYNESS [None]
  - RESTLESSNESS [None]
  - CHILLS [None]
  - ANXIETY [None]
  - CRYING [None]
  - WEIGHT DECREASED [None]
  - NAUSEA [None]
  - DEHYDRATION [None]
